FAERS Safety Report 21716346 (Version 1)
Quarter: 2022Q4

REPORT INFORMATION
  Report Type: Spontaneous
  Country: US (occurrence: US)
  Receive Date: 20221212
  Receipt Date: 20221212
  Transmission Date: 20230112
  Serious: No
  Sender: FDA-Public Use
  Company Number: US-GBT-014281

PATIENT
  Sex: Male

DRUGS (1)
  1. OXBRYTA [Suspect]
     Active Substance: VOXELOTOR
     Indication: Sickle cell anaemia with crisis
     Dosage: THREE TABLETS OF (300 MG TABLET FOR ORAL SUSPENSION) DAILY
     Route: 048
     Dates: start: 202205

REACTIONS (1)
  - Pain in extremity [Recovered/Resolved]
